FAERS Safety Report 8871708 (Version 2)
Quarter: 2012Q4

REPORT INFORMATION
  Report Type: 
  Country: ES (occurrence: ES)
  Receive Date: 20121029
  Receipt Date: 20121120
  Transmission Date: 20130627
  Serious: Yes (Hospitalization)
  Sender: FDA-Public Use
  Company Number: PHHO2012ES015249

PATIENT
  Age: 61 Year
  Sex: Male
  Weight: 74 kg

DRUGS (6)
  1. OCTREOTIDE [Suspect]
     Indication: NEUROENDOCRINE CARCINOMA METASTATIC
     Dosage: 30 mg, cyclic, every 28 days
     Route: 030
     Dates: start: 20120625, end: 20121003
  2. OCTREOTIDE [Suspect]
     Dosage: 30 mg, cyclic, every 28 days
     Route: 030
     Dates: start: 20121022
  3. AXITINIB [Concomitant]
     Indication: NEUROENDOCRINE CARCINOMA METASTATIC
     Dosage: 10 mg, BID
     Dates: start: 20120625, end: 20121003
  4. AXITINIB [Concomitant]
     Dosage: 10 mg, BID
     Dates: start: 20121022
  5. ALLOPURINOL [Concomitant]
     Indication: HYPERURICAEMIA
     Dosage: UNK
  6. SPASMOCTYL [Concomitant]
     Indication: ABDOMINAL PAIN UPPER
     Dosage: UNK

REACTIONS (1)
  - Anorectal infection [Recovered/Resolved]
